FAERS Safety Report 4711622-2 (Version None)
Quarter: 2005Q2

REPORT INFORMATION
  Report Type: 
  Country: None (occurrence: None)
  Receive Date: 20050629
  Receipt Date: 20050420
  Transmission Date: 20051028
  Serious: No
  Sender: FDA-Public Use
  Company Number: 05P-163-0297939-00

PATIENT
  Age: 75 Year
  Sex: Male
  Weight: 83.9154 kg

DRUGS (11)
  1. HUMIRA [Suspect]
     Indication: RHEUMATOID ARTHRITIS
     Dosage: 40 MG, 1 IN 1 WK, SUBCUTANEOUS
     Route: 058
     Dates: start: 20040701, end: 20050419
  2. LEVOTHYROXINE SODIUM [Concomitant]
  3. METOPROLOL SUCCINATE [Concomitant]
  4. CLOPIDOGREL BISULFATE [Concomitant]
  5. SPIRONOLACTONE [Concomitant]
  6. FUROSEMIDE [Concomitant]
  7. COLCHICINE [Concomitant]
  8. POTASSIUM CHLORIDE [Concomitant]
  9. RABEPRAZOLE SODIUM [Concomitant]
  10. CENTRUM [Concomitant]
  11. CETIRIZINE HCL [Concomitant]

REACTIONS (1)
  - RASH PRURITIC [None]
